FAERS Safety Report 5004504-2 (Version None)
Quarter: 2006Q2

REPORT INFORMATION
  Report Type: 
  Country: None (occurrence: None)
  Receive Date: 20060517
  Receipt Date: 20060515
  Transmission Date: 20061013
  Serious: Yes (Other)
  Sender: FDA-Public Use
  Company Number: US-GLAXOSMITHKLINE-A0605578A

PATIENT
  Age: 35 Year
  Sex: Male

DRUGS (3)
  1. NICORETTE [Suspect]
     Indication: SMOKING CESSATION THERAPY
     Dosage: 4MG SEE DOSAGE TEXT
     Route: 002
     Dates: start: 20051001
  2. ASACOL [Concomitant]
  3. PREVACID [Concomitant]

REACTIONS (9)
  - ABDOMINAL PAIN [None]
  - COLITIS ULCERATIVE [None]
  - DIARRHOEA [None]
  - FLATULENCE [None]
  - HAEMATOCHEZIA [None]
  - INTENTIONAL DRUG MISUSE [None]
  - MALAISE [None]
  - NAUSEA [None]
  - PHARMACEUTICAL PRODUCT COMPLAINT [None]
